FAERS Safety Report 22212709 (Version 1)
Quarter: 2023Q2

REPORT INFORMATION
  Report Type: Spontaneous
  Country: US (occurrence: None)
  Receive Date: 20230414
  Receipt Date: 20230414
  Transmission Date: 20230721
  Serious: Yes (Hospitalization)
  Sender: FDA-Public Use
  Company Number: None

PATIENT
  Age: 69 Year
  Sex: Female
  Weight: 43 kg

DRUGS (1)
  1. ZOLEDRONIC ACID [Suspect]
     Active Substance: ZOLEDRONIC ACID
     Indication: Osteoporosis
     Dosage: OTHER FREQUENCY : ONCE;?
     Route: 041
     Dates: start: 20230302, end: 20230302

REACTIONS (6)
  - Discomfort [None]
  - Muscle tightness [None]
  - Feeling cold [None]
  - Insomnia [None]
  - Headache [None]
  - Uveitis [None]

NARRATIVE: CASE EVENT DATE: 20230310
